FAERS Safety Report 7933104-7 (Version None)
Quarter: 2011Q4

REPORT INFORMATION
  Report Type: 
  Country: None (occurrence: None)
  Receive Date: 20111122
  Receipt Date: 20111117
  Transmission Date: 20120403
  Serious: Yes (Death, Hospitalization, Other)
  Sender: FDA-Public Use
  Company Number: PHHY2011UZ097510

PATIENT
  Sex: Male
  Weight: 68 kg

DRUGS (1)
  1. GLEEVEC [Suspect]
     Indication: CHRONIC MYELOID LEUKAEMIA
     Dosage: 1000 MG (400 MG AND 600 MG)
     Route: 048
     Dates: start: 20061012

REACTIONS (4)
  - TOXICITY TO VARIOUS AGENTS [None]
  - ENTEROCOLITIS INFECTIOUS [None]
  - DIARRHOEA [None]
  - FOOD POISONING [None]
